FAERS Safety Report 12547446 (Version 1)
Quarter: 2016Q3

REPORT INFORMATION
  Report Type: Spontaneous
  Country: US (occurrence: US)
  Receive Date: 20160711
  Receipt Date: 20160711
  Transmission Date: 20161109
  Serious: Yes (Hospitalization)
  Sender: FDA-Public Use
  Company Number: US-BEH-2016070965

PATIENT
  Sex: Female
  Weight: 52.15 kg

DRUGS (36)
  1. HIZENTRA [Suspect]
     Active Substance: HUMAN IMMUNOGLOBULIN G
     Indication: IMMUNODEFICIENCY COMMON VARIABLE
     Dosage: 8 G, QW
     Route: 058
     Dates: start: 20101229
  2. METOPROLOL TARTRATE. [Concomitant]
     Active Substance: METOPROLOL TARTRATE
  3. IRON [Concomitant]
     Active Substance: IRON
  4. ALBUTEROL                          /00139501/ [Concomitant]
     Active Substance: ALBUTEROL
  5. DILTIAZEM. [Concomitant]
     Active Substance: DILTIAZEM
  6. LIPITOR [Concomitant]
     Active Substance: ATORVASTATIN CALCIUM
  7. TOPROL XL [Concomitant]
     Active Substance: METOPROLOL SUCCINATE
  8. HYDRALAZINE [Concomitant]
     Active Substance: HYDRALAZINE HYDROCHLORIDE
  9. TAMSULOSIN [Concomitant]
     Active Substance: TAMSULOSIN
  10. PLAVIX [Concomitant]
     Active Substance: CLOPIDOGREL BISULFATE
  11. EPIPEN [Concomitant]
     Active Substance: EPINEPHRINE
  12. LANTUS [Concomitant]
     Active Substance: INSULIN GLARGINE
  13. OCUVITE [Concomitant]
     Active Substance: VITAMINS
  14. XARELTO [Concomitant]
     Active Substance: RIVAROXABAN
  15. OXYGEN. [Concomitant]
     Active Substance: OXYGEN
  16. TRAZODONE                          /00447702/ [Concomitant]
     Active Substance: TRAZODONE HYDROCHLORIDE
  17. TRAZODONE [Concomitant]
     Active Substance: TRAZODONE HYDROCHLORIDE
  18. VITAMIN D                          /00107901/ [Concomitant]
     Active Substance: ERGOCALCIFEROL
  19. ACETYLCYSTEINE. [Concomitant]
     Active Substance: ACETYLCYSTEINE
  20. ADVAIR HFA [Concomitant]
     Active Substance: FLUTICASONE PROPIONATE\SALMETEROL XINAFOATE
  21. CYMBALTA [Concomitant]
     Active Substance: DULOXETINE HYDROCHLORIDE
  22. LASIX [Concomitant]
     Active Substance: FUROSEMIDE
  23. JANUVIA [Concomitant]
     Active Substance: SITAGLIPTIN PHOSPHATE
  24. PANTOPRAZOLE [Concomitant]
     Active Substance: PANTOPRAZOLE SODIUM
  25. ATORVASTATIN CALCIUM. [Concomitant]
     Active Substance: ATORVASTATIN CALCIUM
  26. KLOR-CON [Concomitant]
     Active Substance: POTASSIUM CHLORIDE
  27. TYLENOL [Concomitant]
     Active Substance: ACETAMINOPHEN
  28. GABAPENTIN. [Concomitant]
     Active Substance: GABAPENTIN
  29. AMIODARONE [Concomitant]
     Active Substance: AMIODARONE
  30. FLONASE [Concomitant]
     Active Substance: FLUTICASONE PROPIONATE
  31. FOLIC ACID. [Concomitant]
     Active Substance: FOLIC ACID
  32. FLOMAX [Concomitant]
     Active Substance: TAMSULOSIN HYDROCHLORIDE
  33. ALBUTEROL                          /00139501/ [Concomitant]
     Active Substance: ALBUTEROL
  34. DIGOXIN. [Concomitant]
     Active Substance: DIGOXIN
  35. ISOSORBIDE DINITRATE. [Concomitant]
     Active Substance: ISOSORBIDE DINITRATE
  36. K-DUR [Concomitant]
     Active Substance: POTASSIUM CHLORIDE

REACTIONS (1)
  - Thrombosis [Unknown]
